FAERS Safety Report 5044395-7 (Version None)
Quarter: 2006Q2

REPORT INFORMATION
  Report Type: 
  Country: None (occurrence: None)
  Receive Date: 20060629
  Receipt Date: 20060616
  Transmission Date: 20061013
  Serious: Yes (Other)
  Sender: FDA-Public Use
  Company Number: 2006071417

PATIENT
  Age: 46 Year
  Sex: Female

DRUGS (2)
  1. NEURONTIN [Suspect]
     Indication: PAIN
     Dosage: 2400 MG (800 MG, 3 IN 1 D), ORAL
     Route: 048
     Dates: start: 20050623, end: 20060418
  2. VASOTEC [Concomitant]

REACTIONS (2)
  - PRURITUS [None]
  - RASH [None]
